FAERS Safety Report 15511993 (Version 1)
Quarter: 2018Q4

REPORT INFORMATION
  Report Type: Spontaneous
  Country: US (occurrence: US)
  Receive Date: 20181017
  Receipt Date: 20181017
  Transmission Date: 20190205
  Serious: No
  Sender: FDA-Public Use
  Company Number: None

PATIENT
  Age: 21 Year
  Sex: Female
  Weight: 47.25 kg

DRUGS (1)
  1. VIENVA TM [Suspect]
     Active Substance: ETHINYL ESTRADIOL\LEVONORGESTREL
     Indication: CONTRACEPTION
     Dosage: ?          QUANTITY:1 TABLET(S);?
     Route: 048
     Dates: start: 20180801, end: 20181015

REACTIONS (9)
  - Loss of libido [None]
  - Increased appetite [None]
  - Anxiety [None]
  - Exercise lack of [None]
  - Social avoidant behaviour [None]
  - Depression [None]
  - Crying [None]
  - Food craving [None]
  - Abdominal distension [None]

NARRATIVE: CASE EVENT DATE: 20180801
